FAERS Safety Report 12664460 (Version 3)
Quarter: 2017Q1

REPORT INFORMATION
  Report Type: Spontaneous
  Country: US (occurrence: US)
  Receive Date: 20160818
  Receipt Date: 20170210
  Transmission Date: 20170428
  Serious: Yes (Other)
  Sender: FDA-Public Use
  Company Number: US-PFIZER INC-2016387202

PATIENT
  Age: 61 Year
  Sex: Female

DRUGS (2)
  1. IBRANCE [Suspect]
     Active Substance: PALBOCICLIB
     Indication: BREAST CANCER FEMALE
     Dosage: 125 MG, CYCLIC (DAILY X 21 DAYS)
     Route: 048
     Dates: start: 20160630
  2. IBRANCE [Suspect]
     Active Substance: PALBOCICLIB
     Dosage: 125 MG, CYCLIC  (DAILY X 21 DAYS)
     Route: 048
     Dates: start: 20160801

REACTIONS (6)
  - Full blood count decreased [Unknown]
  - Migraine [Unknown]
  - Renal disorder [Unknown]
  - Tunnel vision [Unknown]
  - Neuropathy peripheral [Unknown]
  - Eye pain [Unknown]

NARRATIVE: CASE EVENT DATE: 20160801
